FAERS Safety Report 5703877-2 (Version None)
Quarter: 2008Q2

REPORT INFORMATION
  Report Type: 
  Country: None (occurrence: None)
  Receive Date: 20080414
  Receipt Date: 20080402
  Transmission Date: 20081010
  Serious: Yes (Other)
  Sender: FDA-Public Use
  Company Number: CN-ELI_LILLY_AND_COMPANY-CN200804000009

PATIENT
  Age: 88 Year
  Sex: Female

DRUGS (6)
  1. ZYPREXA [Suspect]
     Indication: DELIRIUM
     Dosage: 5 MG, DAILY (1/D)
     Route: 048
     Dates: start: 20080220, end: 20080220
  2. ZYPREXA [Suspect]
     Dosage: 2.5 MG, DAILY (1/D)
     Route: 048
     Dates: start: 20080221, end: 20080229
  3. ZYPREXA [Suspect]
     Dosage: 5 MG, DAILY (1/D)
     Route: 048
     Dates: start: 20080301
  4. ZYPREXA [Suspect]
     Dosage: 5 MG, DAILY (1/D)
     Route: 048
     Dates: start: 20080308, end: 20080301
  5. ZYPREXA [Suspect]
     Dosage: 1.25 MG, DAILY (1/D)
     Route: 048
     Dates: start: 20080317, end: 20080324
  6. ZYPREXA [Suspect]
     Dosage: 1.67 MG, DAILY (1/D)
     Route: 048
     Dates: start: 20080325

REACTIONS (10)
  - ABNORMAL DREAMS [None]
  - ANXIETY [None]
  - ARRHYTHMIA [None]
  - BLOOD URINE PRESENT [None]
  - CRYING [None]
  - DRUG INEFFECTIVE [None]
  - FATIGUE [None]
  - HYPERSOMNIA [None]
  - INITIAL INSOMNIA [None]
  - REFUSAL OF TREATMENT BY PATIENT [None]
